FAERS Safety Report 15251127 (Version 4)
Quarter: 2018Q4

REPORT INFORMATION
  Report Type: Report from Study
  Country: DE (occurrence: DE)
  Receive Date: 20180807
  Receipt Date: 20181010
  Transmission Date: 20190204
  Serious: Yes (Hospitalization)
  Sender: FDA-Public Use
  Company Number: DE-CELGENEUS-DEU-20180702860

PATIENT
  Age: 74 Year
  Sex: Female
  Weight: 70 kg

DRUGS (5)
  1. FUNGUS [Concomitant]
     Indication: BREAST CANCER
     Route: 048
  2. PEMBROLIZUMAB (MK-3475) [Suspect]
     Active Substance: PEMBROLIZUMAB
     Indication: BREAST CANCER
     Route: 041
     Dates: start: 20180608, end: 20180702
  3. ABRAXANE [Suspect]
     Active Substance: PACLITAXEL
     Indication: BREAST CANCER
     Dosage: 30.6 MILLIGRAM
     Route: 041
     Dates: start: 20180604, end: 20180702
  4. AGARICUS + VITAMIN C [Concomitant]
     Indication: SUPPORTIVE CARE
     Dosage: 1710 MG
     Route: 048
     Dates: start: 20180608, end: 20180709
  5. MAITAKE + VITAMIN C [Concomitant]
     Indication: SUPPORTIVE CARE
     Dosage: 1800 MG
     Route: 048
     Dates: start: 20180608, end: 20180709

REACTIONS (1)
  - Hepatitis [Recovered/Resolved with Sequelae]

NARRATIVE: CASE EVENT DATE: 20180709
